FAERS Safety Report 18952046 (Version 2)
Quarter: 2021Q2

REPORT INFORMATION
  Report Type: Report from Study
  Country: None (occurrence: US)
  Receive Date: 20210301
  Receipt Date: 20210525
  Transmission Date: 20210717
  Serious: Yes (Other)
  Sender: FDA-Public Use
  Company Number: US-ABBVIE-21K-163-3792510-00

PATIENT
  Age: 71 Year
  Sex: Female

DRUGS (1)
  1. HUMIRA [Suspect]
     Active Substance: ADALIMUMAB
     Indication: PSORIATIC ARTHROPATHY
     Route: 058

REACTIONS (4)
  - Heart rate decreased [Recovering/Resolving]
  - Arthralgia [Recovering/Resolving]
  - Atrial fibrillation [Recovering/Resolving]
  - Joint lock [Recovering/Resolving]

NARRATIVE: CASE EVENT DATE: 202008
